FAERS Safety Report 19501508 (Version 1)
Quarter: 2021Q3

REPORT INFORMATION
  Report Type: Spontaneous
  Country: TW (occurrence: TW)
  Receive Date: 20210707
  Receipt Date: 20210707
  Transmission Date: 20211014
  Serious: Yes (Other)
  Sender: FDA-Public Use
  Company Number: TW-LEADINGPHARMA-TW-2021LEALIT00216

PATIENT
  Age: 38 Year
  Sex: Female

DRUGS (2)
  1. FUROSEMIDE. [Suspect]
     Active Substance: FUROSEMIDE
     Indication: BODY DYSMORPHIC DISORDER
     Route: 065
  2. POTASSIUM CHLORIDE. [Interacting]
     Active Substance: POTASSIUM CHLORIDE
     Indication: HYPOKALAEMIA
     Route: 048

REACTIONS (4)
  - Product use in unapproved indication [Unknown]
  - Hypokalaemia [Recovered/Resolved]
  - Drug abuse [Unknown]
  - Nephrocalcinosis [Not Recovered/Not Resolved]
